FAERS Safety Report 4672946-0 (Version None)
Quarter: 2005Q2

REPORT INFORMATION
  Report Type: 
  Country: None (occurrence: None)
  Receive Date: 20050524
  Receipt Date: 20050511
  Transmission Date: 20051028
  Serious: Yes (Disabling)
  Sender: FDA-Public Use
  Company Number: GB-MERCK-0505GBR00099

PATIENT
  Age: 58 Year
  Sex: Male

DRUGS (7)
  1. ZOCOR [Suspect]
     Indication: MYOCARDIAL ISCHAEMIA
     Route: 048
     Dates: start: 20050329, end: 20050424
  2. ATENOLOL [Concomitant]
     Indication: HYPERTENSION
     Route: 048
     Dates: start: 19930101
  3. BENDROFLUMETHIAZIDE [Concomitant]
     Indication: HYPERTENSION
     Route: 048
     Dates: start: 19960101
  4. COZAAR [Concomitant]
     Indication: HYPERTENSION
     Route: 048
     Dates: start: 20050207
  5. OMEPRAZOLE [Concomitant]
     Indication: HYPERTENSION
     Route: 048
     Dates: start: 19970101
  6. ASPIRIN [Concomitant]
     Indication: HIATUS HERNIA
     Route: 048
  7. DIAZEPAM [Concomitant]
     Route: 065

REACTIONS (3)
  - ANGINA UNSTABLE [None]
  - CONDITION AGGRAVATED [None]
  - GENERAL SYMPTOM [None]
